FAERS Safety Report 25875886 (Version 4)
Quarter: 2025Q4

REPORT INFORMATION
  Report Type: Report from Study
  Country: CD (occurrence: CD)
  Receive Date: 20251003
  Receipt Date: 20251031
  Transmission Date: 20260117
  Serious: Yes (Death, Life-Threatening, Hospitalization)
  Sender: EMERGENT BIOSOLUTIONS
  Company Number: CD-EMERGENT BIOSOLUTIONS-25000150

PATIENT
  Age: 19 Month
  Sex: Male
  Weight: 9 kg

DRUGS (6)
  1. EBANGA [Suspect]
     Active Substance: ANSUVIMAB-ZYKL
     Indication: Prophylaxis
     Dosage: 450 MILLIGRAM, QD, SINGLE DOSE
     Route: 042
     Dates: start: 20250914, end: 20250914
  2. EBANGA [Suspect]
     Active Substance: ANSUVIMAB-ZYKL
     Dosage: UNK, DOSE 2, SINGLE DOSE
     Route: 065
     Dates: start: 20250922, end: 20250922
  3. ACETAMINOPHEN [Concomitant]
     Active Substance: ACETAMINOPHEN
     Indication: Pyrexia
     Dosage: UNK
     Route: 048
     Dates: start: 20250921
  4. ZINC SULFATE [Concomitant]
     Active Substance: ZINC SULFATE
     Indication: Gastrointestinal disorder
     Dosage: UNK
     Route: 048
     Dates: start: 20250921
  5. Amodiaquine;Artesunate [Concomitant]
     Indication: Malaria
     Dosage: UNK
     Route: 048
     Dates: start: 20250921
  6. LACTATED RINGERS SOLUTION [Concomitant]
     Active Substance: CALCIUM CHLORIDE\POTASSIUM CHLORIDE\SODIUM CHLORIDE\SODIUM LACTATE
     Indication: Dehydration
     Dosage: UNK
     Route: 042
     Dates: start: 20250921

REACTIONS (2)
  - Ebola disease [Fatal]
  - Drug ineffective for unapproved indication [Fatal]

NARRATIVE: CASE EVENT DATE: 20250921
